FAERS Safety Report 6048291-8 (Version None)
Quarter: 2009Q1

REPORT INFORMATION
  Report Type: 
  Country: None (occurrence: None)
  Receive Date: 20090123
  Receipt Date: 20090115
  Transmission Date: 20090719
  Serious: Yes (Hospitalization)
  Sender: FDA-Public Use
  Company Number: CA-ASTRAZENECA-2009UW01551

PATIENT
  Age: 62 Year
  Sex: Female
  Weight: 77.1 kg

DRUGS (9)
  1. SEROQUEL [Suspect]
     Dosage: 200MG
     Route: 048
  2. ALTACE [Concomitant]
  3. ASPIRIN [Concomitant]
  4. CLONAZEPAM [Concomitant]
  5. GLUCONORM [Concomitant]
  6. METFORMIN HCL [Concomitant]
  7. METOPROLOL [Concomitant]
  8. VERAPAMIL HCL [Concomitant]
  9. VITAMIN B COMPLEX CAP [Concomitant]

REACTIONS (4)
  - CARDIAC FIBRILLATION [None]
  - CHEST PAIN [None]
  - HYPERTENSION [None]
  - PNEUMONIA [None]
